FAERS Safety Report 16019955 (Version 1)
Quarter: 2019Q1

REPORT INFORMATION
  Report Type: Spontaneous
  Country: DE (occurrence: DE)
  Receive Date: 20190228
  Receipt Date: 20190228
  Transmission Date: 20190418
  Serious: Yes (Hospitalization)
  Sender: FDA-Public Use
  Company Number: DE-MYLANLABS-2019M1016960

PATIENT
  Age: 25 Year
  Sex: Male

DRUGS (6)
  1. IMATINIB. [Suspect]
     Active Substance: IMATINIB MESYLATE
     Indication: ROSAI-DORFMAN SYNDROME
     Dosage: 400 MILLIGRAM, QD
     Route: 065
  2. CLOFARABINE. [Suspect]
     Active Substance: CLOFARABINE
     Indication: ROSAI-DORFMAN SYNDROME
     Dosage: SALVAGE THERAPY: 25 MG/M2 /DAY X 5 DAYS/CYCLE EVERY 28 DAYS
     Route: 065
  3. RITUXIMAB. [Suspect]
     Active Substance: RITUXIMAB
     Indication: LYMPHADENOPATHY
  4. IMATINIB. [Suspect]
     Active Substance: IMATINIB MESYLATE
     Indication: LYMPHADENOPATHY
  5. RITUXIMAB. [Suspect]
     Active Substance: RITUXIMAB
     Indication: ROSAI-DORFMAN SYNDROME
     Dosage: SALVAGE THERAPY: 4 DOSES FOR EVERY 3 WEEKS
     Route: 065
  6. CLOFARABINE. [Suspect]
     Active Substance: CLOFARABINE
     Indication: LYMPHADENOPATHY

REACTIONS (4)
  - Thrombocytopenia [Recovered/Resolved]
  - Drug ineffective [Unknown]
  - Neutropenia [Recovered/Resolved]
  - Pancytopenia [Recovered/Resolved]
